FAERS Safety Report 4815013-5 (Version None)
Quarter: 2005Q4

REPORT INFORMATION
  Report Type: 
  Country: None (occurrence: None)
  Receive Date: 20051026
  Receipt Date: 20051010
  Transmission Date: 20060501
  Serious: Yes (Hospitalization, Other)
  Sender: FDA-Public Use
  Company Number: US_0501110430

PATIENT
  Age: 44 Year
  Sex: Female

DRUGS (4)
  1. ZYPREXA [Suspect]
     Indication: SCHIZOPHRENIA
     Dosage: 20 MG AT BEDTIME
     Dates: start: 20000124
  2. CARBAMAZEPINE [Concomitant]
  3. AMITRIPTYLINE HCL [Concomitant]
  4. PAXIL [Concomitant]

REACTIONS (2)
  - CHOLECYSTITIS ACUTE [None]
  - PANCREATITIS [None]
